FAERS Safety Report 19649042 (Version 3)
Quarter: 2021Q4

REPORT INFORMATION
  Report Type: Spontaneous
  Country: JP (occurrence: JP)
  Receive Date: 20210802
  Receipt Date: 20211122
  Transmission Date: 20220303
  Serious: Yes (Hospitalization, Other)
  Sender: FDA-Public Use
  Company Number: JP-BRISTOL-MYERS SQUIBB COMPANY-BMS-2021-031006

PATIENT
  Age: 72 Year
  Sex: Male

DRUGS (4)
  1. YERVOY [Suspect]
     Active Substance: IPILIMUMAB
     Indication: Metastatic renal cell carcinoma
     Dosage: 60 MILLIGRAM, ONE TIME DOSE
     Route: 041
     Dates: start: 20210120, end: 20210120
  2. YERVOY [Suspect]
     Active Substance: IPILIMUMAB
     Dosage: 60 MILLIGRAM, ONE TIME DOSE
     Route: 041
     Dates: start: 20210210, end: 20210210
  3. OPDIVO [Suspect]
     Active Substance: NIVOLUMAB
     Indication: Metastatic renal cell carcinoma
     Dosage: 240 MILLIGRAM, ONE TIME DOSE
     Route: 041
     Dates: start: 20210120, end: 20210120
  4. OPDIVO [Suspect]
     Active Substance: NIVOLUMAB
     Dosage: 240 MILLIGRAM, ONE TIME DOSE
     Route: 041
     Dates: start: 20210210, end: 20210210

REACTIONS (8)
  - Headache [Recovered/Resolved]
  - Blood pressure systolic decreased [Recovering/Resolving]
  - Adrenal insufficiency [Recovering/Resolving]
  - Autoimmune thyroid disorder [Unknown]
  - Silent thyroiditis [Unknown]
  - Decreased appetite [Unknown]
  - Head discomfort [Unknown]
  - Iodine uptake decreased [Unknown]

NARRATIVE: CASE EVENT DATE: 20210305
